FAERS Safety Report 13333224 (Version 1)
Quarter: 2017Q1

REPORT INFORMATION
  Report Type: Spontaneous
  Country: AU (occurrence: AU)
  Receive Date: 20170313
  Receipt Date: 20170313
  Transmission Date: 20170428
  Serious: Yes (Other)
  Sender: FDA-Public Use
  Company Number: AU-009507513-1703AUS003621

PATIENT

DRUGS (7)
  1. CYPROTERONE [Suspect]
     Active Substance: CYPROTERONE
  2. ACETAMINOPHEN. [Suspect]
     Active Substance: ACETAMINOPHEN
  3. BICALUTAMIDE. [Suspect]
     Active Substance: BICALUTAMIDE
  4. EZETIMIBE MSD [Suspect]
     Active Substance: EZETIMIBE
     Route: 048
  5. AMOXICILLIN. [Suspect]
     Active Substance: AMOXICILLIN
  6. ASPIRIN. [Suspect]
     Active Substance: ASPIRIN
     Route: 048
  7. CLOPIDOGREL [Suspect]
     Active Substance: CLOPIDOGREL BISULFATE

REACTIONS (1)
  - Drug-induced liver injury [Unknown]
